FAERS Safety Report 26171335 (Version 1)
Quarter: 2025Q4

REPORT INFORMATION
  Report Type: Spontaneous
  Country: GB (occurrence: GB)
  Receive Date: 20251217
  Receipt Date: 20251217
  Transmission Date: 20260118
  Serious: Yes (Disabling, Other)
  Sender: TEVA
  Company Number: GB-KENVUE-20251110275

PATIENT
  Age: 16 Year
  Sex: Male

DRUGS (2)
  1. CETIRIZINE [Suspect]
     Active Substance: CETIRIZINE HYDROCHLORIDE
     Indication: Adverse drug reaction
     Dosage: UNK, HYDROCHLORIDE
     Route: 065
     Dates: start: 20250116, end: 20250130
  2. FEXOFENADINE [Concomitant]
     Active Substance: FEXOFENADINE HYDROCHLORIDE
     Indication: Adverse drug reaction
     Dosage: 180 MG 1 A DAY WITH AN INCREASE TO 4 A DAY
     Dates: start: 202410, end: 20250130

REACTIONS (2)
  - Psychotic disorder [Not Recovered/Not Resolved]
  - Off label use [Unknown]

NARRATIVE: CASE EVENT DATE: 20250116
